FAERS Safety Report 10082683 (Version 3)
Quarter: 2014Q2

REPORT INFORMATION
  Report Type: Spontaneous
  Country: AU (occurrence: AU)
  Receive Date: 20140416
  Receipt Date: 20140428
  Transmission Date: 20141212
  Serious: Yes (Death, Other)
  Sender: FDA-Public Use
  Company Number: AU-B.I. PHARMACEUTICALS,INC./RIDGEFIELD-2014-BI-17210AU

PATIENT
  Age: 86 Year
  Sex: Female

DRUGS (19)
  1. MICARDIS [Suspect]
     Indication: PRODUCT USED FOR UNKNOWN INDICATION
     Dosage: 40 MG
     Route: 048
     Dates: start: 200902, end: 20100903
  2. MICARDIS [Suspect]
     Dosage: 20 MG
     Route: 048
     Dates: start: 20100904, end: 20100905
  3. FENTANYL SPRAY [Suspect]
     Indication: BACK PAIN
     Dosage: 4 MCG
     Route: 061
     Dates: start: 20100901, end: 20100904
  4. AMIODARONE [Concomitant]
     Dosage: 200 MG
     Route: 048
     Dates: end: 20100902
  5. ASPIRIN [Concomitant]
     Dosage: 100 MG
     Route: 048
     Dates: end: 20100908
  6. OROXINE [Concomitant]
     Dosage: 0.1 MG
     Route: 048
     Dates: end: 20100908
  7. FRUSEMIDE [Concomitant]
     Dosage: 250 MG
     Route: 048
     Dates: start: 20100831, end: 20100908
  8. CEPHALEXIN [Concomitant]
     Indication: URINARY TRACT INFECTION
     Dosage: 2000 MG
     Route: 048
     Dates: start: 20100907, end: 20100907
  9. CEFTRIAXONE [Concomitant]
     Indication: URINARY TRACT INFECTION
     Dosage: 1 G
     Route: 042
     Dates: start: 20100907, end: 20100907
  10. CLEXANE [Concomitant]
     Dosage: 20 MG
     Route: 058
     Dates: start: 20100908, end: 20100908
  11. RISPERIDONE [Concomitant]
     Indication: AGITATION
     Route: 065
  12. RISPERIDONE [Concomitant]
     Indication: CONFUSIONAL STATE
  13. DIGOXIN [Concomitant]
     Route: 065
     Dates: end: 20100831
  14. SOMAC [Concomitant]
     Dosage: 40 MG
     Route: 065
     Dates: end: 20100907
  15. CALTRATE [Concomitant]
     Dosage: 1 ANZ
     Route: 065
     Dates: start: 20100903, end: 20100908
  16. MOVICOL [Concomitant]
     Dosage: 2 ANZ
     Route: 065
     Dates: start: 20100903, end: 20100908
  17. PARACETAMOL [Concomitant]
     Dosage: 4 G
     Route: 048
     Dates: end: 20100904
  18. PARACETAMOL OSTEO [Concomitant]
     Dosage: 6 ANZ
     Route: 048
     Dates: start: 20100904, end: 20100907
  19. OSTELIN [Concomitant]
     Dosage: 2 ANZ
     Route: 048
     Dates: start: 20100908, end: 20100908

REACTIONS (15)
  - Anaphylactic reaction [Fatal]
  - Hypersensitivity [Fatal]
  - Oropharyngeal swelling [Fatal]
  - Cardiac amyloidosis [Fatal]
  - Coronary artery disease [Fatal]
  - Convulsion [Unknown]
  - Medication error [Unknown]
  - Stridor [Unknown]
  - Swelling face [Recovered/Resolved]
  - Swollen tongue [Recovered/Resolved]
  - Dysarthria [Unknown]
  - Dysphagia [Unknown]
  - Back pain [Unknown]
  - Sinus bradycardia [Unknown]
  - Hypotension [Unknown]
